FAERS Safety Report 5146901-0 (Version None)
Quarter: 2006Q4

REPORT INFORMATION
  Report Type: 
  Country: None (occurrence: None)
  Receive Date: 20061109
  Receipt Date: 20060420
  Transmission Date: 20070319
  Serious: Yes (Death)
  Sender: FDA-Public Use
  Company Number: US-NOVOPROD-252574

PATIENT
  Age: 24 Year
  Sex: Male
  Weight: 98 kg

DRUGS (33)
  1. NOVOSEVEN [Suspect]
     Indication: HAEMORRHAGE INTRACRANIAL
     Dosage: 67200 UG, QD
     Dates: start: 20060330, end: 20060330
  2. NOVOSEVEN [Suspect]
     Dosage: 42000 UG, QD
     Dates: start: 20060331, end: 20060331
  3. NOVOSEVEN [Suspect]
     Dosage: 33600 UG, QD
     Dates: start: 20060401, end: 20060401
  4. NOVOSEVEN [Suspect]
     Dosage: 25200 UG, QD
     Dates: start: 20060402, end: 20060402
  5. NOVOSEVEN [Suspect]
     Dosage: 58800 UG, QD
     Dates: start: 20060329, end: 20060329
  6. NOVOSEVEN [Suspect]
  7. NOVOSEVEN [Suspect]
  8. NOVOSEVEN [Suspect]
  9. NOVOSEVEN [Suspect]
  10. NOVOSEVEN [Suspect]
  11. NOVOSEVEN [Suspect]
  12. NOVOSEVEN [Suspect]
  13. NOVOSEVEN [Suspect]
  14. CRYOPRECIPITATES [Concomitant]
     Indication: HAEMORRHAGE INTRACRANIAL
     Dates: start: 20060328, end: 20060328
  15. FACTOR VIII [Concomitant]
     Indication: HAEMORRHAGE INTRACRANIAL
     Dosage: 10000 U, QD
  16. DEXTROSE W/POTASSIUM CHLORIDE AND NACL [Concomitant]
     Indication: ILL-DEFINED DISORDER
     Dosage: 1000 ML, UNK
     Dates: start: 20060328
  17. VITAMIN K                          /00032401/ [Concomitant]
     Indication: ILL-DEFINED DISORDER
     Dosage: 10 MG, UNK
     Dates: start: 20060328
  18. ZOFRAN [Concomitant]
     Indication: ILL-DEFINED DISORDER
     Dosage: 4 MG, UNK
     Dates: start: 20060328
  19. TYLENOL                            /00020001/ [Concomitant]
     Indication: ILL-DEFINED DISORDER
     Dosage: 650 MG, UNK
     Dates: start: 20060328
  20. COLACE [Concomitant]
     Indication: ILL-DEFINED DISORDER
     Dosage: 100 MG, UNK
     Dates: start: 20060328
  21. HYDRALAZINE HCL [Concomitant]
     Indication: ILL-DEFINED DISORDER
     Dosage: 10 MG, UNK
     Dates: start: 20060328
  22. LABETALOL HCL [Concomitant]
     Indication: ILL-DEFINED DISORDER
     Dosage: 10 MG, UNK
     Dates: start: 20060328
  23. MULTIVITAMIN                       /00831701/ [Concomitant]
     Indication: ILL-DEFINED DISORDER
     Dosage: 1 TAB, UNK
     Dates: start: 20060328
  24. PROTONIX                           /01263201/ [Concomitant]
     Indication: ILL-DEFINED DISORDER
     Dosage: 40 MG, UNK
     Dates: start: 20060328
  25. ATROPINE [Concomitant]
     Indication: ILL-DEFINED DISORDER
     Dates: start: 20060328
  26. LIDOCAINE [Concomitant]
     Indication: ILL-DEFINED DISORDER
     Dates: start: 20060329
  27. MIDAZOLAM HYDROCHLORIDE [Concomitant]
     Indication: ILL-DEFINED DISORDER
     Dates: start: 20060329
  28. FENTANYL CITRATE [Concomitant]
     Indication: ILL-DEFINED DISORDER
     Dates: start: 20060329
  29. FLUCONAZOLE [Concomitant]
     Indication: ILL-DEFINED DISORDER
     Dosage: 200 MG, UNK
     Dates: start: 20060329
  30. GUAIFENESIN [Concomitant]
     Indication: ILL-DEFINED DISORDER
     Dosage: 200 MG, UNK
     Dates: start: 20060402
  31. VASOPRESSIN [Concomitant]
     Indication: ILL-DEFINED DISORDER
     Dates: start: 20060402
  32. EPINEPHRINE [Concomitant]
     Indication: ILL-DEFINED DISORDER
     Dates: start: 20060402
  33. SODIUM BICARBONATE [Concomitant]
     Indication: ILL-DEFINED DISORDER
     Dosage: UNK, UNK
     Dates: start: 20060402

REACTIONS (1)
  - SUDDEN DEATH [None]
